FAERS Safety Report 9947073 (Version 3)
Quarter: 2014Q2

REPORT INFORMATION
  Report Type: Report from Study
  Country: US (occurrence: US)
  Receive Date: 20140303
  Receipt Date: 20140416
  Transmission Date: 20141212
  Serious: Yes (Life-Threatening, Hospitalization)
  Sender: FDA-Public Use
  Company Number: US-TEVA-465858USA

PATIENT
  Age: 1 Year
  Sex: Male

DRUGS (9)
  1. LESTAURTINIB [Suspect]
     Indication: ACUTE LYMPHOCYTIC LEUKAEMIA
     Dates: start: 20130711
  2. CYCLOPHOSPHAMIDE [Suspect]
     Dates: start: 20130711
  3. CYTARABINE [Suspect]
     Dates: start: 20130711
  4. DEXAMETHASONE [Suspect]
     Dates: start: 20130711
  5. ERWINIA ASPARAGINASE [Suspect]
     Dates: start: 20130711
  6. ETOPOSIDE [Suspect]
     Dates: start: 20130711
  7. MERCAPTOPURINE [Suspect]
     Dates: start: 20130711
  8. METHOTREXATE [Suspect]
     Dates: start: 20130711
  9. VINCRISTINE [Suspect]
     Dates: start: 20130711

REACTIONS (2)
  - Neutrophil count decreased [Recovering/Resolving]
  - Febrile neutropenia [Recovering/Resolving]
